FAERS Safety Report 4326400-6 (Version None)
Quarter: 2004Q1

REPORT INFORMATION
  Report Type: 
  Country: None (occurrence: None)
  Receive Date: 20040323
  Receipt Date: 20040316
  Transmission Date: 20041129
  Serious: Yes (Hospitalization, Disabling)
  Sender: FDA-Public Use
  Company Number: HQ1390120MAR2002

PATIENT
  Age: 54 Year
  Sex: Female

DRUGS (7)
  1. DIMETAPP [Suspect]
     Indication: HYPERSENSITIVITY
     Dosage: UNKNOWN, ORAL
     Route: 048
  2. DIMETAPP [Suspect]
     Indication: INFLUENZA
     Dosage: UNKNOWN, ORAL
     Route: 048
  3. DIMETAPP [Suspect]
     Indication: NASOPHARYNGITIS
     Dosage: UNKNOWN, ORAL
     Route: 048
  4. ALKA-SELTZER PLUS (ACETYLSALICYLIC ACID/CHLORPHENAMINE MALEATE/PHENYLP [Suspect]
     Indication: HYPERSENSITIVITY
     Dosage: UNKNOWN, ORAL
     Route: 048
  5. ALKA-SELTZER PLUS (ACETYLSALICYLIC ACID/CHLORPHENAMINE MALEATE/PHENYLP [Suspect]
     Indication: INFLUENZA
     Dosage: UNKNOWN, ORAL
     Route: 048
  6. ALKA-SELTZER PLUS (ACETYLSALICYLIC ACID/CHLORPHENAMINE MALEATE/PHENYLP [Suspect]
     Indication: NASOPHARYNGITIS
     Dosage: UNKNOWN, ORAL
     Route: 048
  7. DEXATRIM (CAFFEINE/PHENYLPROPANOLAMINE HYDROCHLORIDE, ) [Suspect]
     Dosage: UNKNOWN, ORAL
     Route: 048

REACTIONS (3)
  - ACTIVITIES OF DAILY LIVING IMPAIRED [None]
  - CEREBROVASCULAR ACCIDENT [None]
  - VISUAL DISTURBANCE [None]
